FAERS Safety Report 13733917 (Version 8)
Quarter: 2018Q2

REPORT INFORMATION
  Report Type: Report from Study
  Country: US (occurrence: US)
  Receive Date: 20170707
  Receipt Date: 20180416
  Transmission Date: 20180711
  Serious: Yes (Hospitalization)
  Sender: FDA-Public Use
  Company Number: US-ACTELION-A-US2017-152498

PATIENT
  Age: 65 Year
  Sex: Male
  Weight: 92.52 kg

DRUGS (13)
  1. LASIX [Concomitant]
     Active Substance: FUROSEMIDE
     Dosage: 40 MG, ON MONDAY AND FRIDAY
     Route: 048
  2. DOXEPIN [Concomitant]
     Active Substance: DOXEPIN
     Dosage: 10 MG, QPM
  3. UPTRAVI [Suspect]
     Active Substance: SELEXIPAG
     Dosage: 1000 MCG, QAM
     Route: 048
  4. SPIRONOLACTONE. [Concomitant]
     Active Substance: SPIRONOLACTONE
     Dosage: 50 MG, QD
  5. UPTRAVI [Suspect]
     Active Substance: SELEXIPAG
     Dosage: 1000 MCG, BID
     Route: 048
  6. UPTRAVI [Suspect]
     Active Substance: SELEXIPAG
     Dosage: 800 MCG QAM, 1000 MCG QPM
     Route: 048
  7. LEVOTHYROXINE. [Concomitant]
     Active Substance: LEVOTHYROXINE
     Dosage: 25 MEQ, QD
  8. UPTRAVI [Suspect]
     Active Substance: SELEXIPAG
     Indication: PULMONARY HYPERTENSION
     Dosage: 1000 MCG QAM, 800 MCG QPM
     Route: 048
     Dates: start: 201602
  9. VERPAMIL [Concomitant]
     Active Substance: VERAPAMIL HYDROCHLORIDE
  10. ADCIRCA [Concomitant]
     Active Substance: TADALAFIL
     Dosage: 40 MG, QD
  11. OPSUMIT [Suspect]
     Active Substance: MACITENTAN
     Indication: PULMONARY HYPERTENSION
     Dosage: 10 MG, QD
     Route: 048
     Dates: start: 201403
  12. SYMAX SR [Concomitant]
     Active Substance: HYOSCYAMINE SULFATE
     Dosage: 0.375 MG, BID
  13. LASIX [Concomitant]
     Active Substance: FUROSEMIDE
     Dosage: 40 UNK, M W F

REACTIONS (9)
  - Pericardial effusion [Unknown]
  - Cough [Unknown]
  - Syncope [Unknown]
  - Nasopharyngitis [Unknown]
  - Lung disorder [Unknown]
  - Flushing [Unknown]
  - Pleural effusion [Unknown]
  - Orthostatic hypotension [Recovered/Resolved]
  - Dehydration [Unknown]

NARRATIVE: CASE EVENT DATE: 20170801
